FAERS Safety Report 14098483 (Version 1)
Quarter: 2017Q4

REPORT INFORMATION
  Report Type: Spontaneous
  Country: US (occurrence: US)
  Receive Date: 20171017
  Receipt Date: 20171017
  Transmission Date: 20180321
  Serious: Yes (Other)
  Sender: FDA-Public Use
  Company Number: None

PATIENT
  Age: 59 Year
  Sex: Female
  Weight: 78.3 kg

DRUGS (1)
  1. MODAFINIL. [Suspect]
     Active Substance: MODAFINIL
     Indication: SLEEP DISORDER
     Dosage: ?          QUANTITY:90 TABLET(S);?
     Route: 048
     Dates: start: 20171009, end: 20171017

REACTIONS (5)
  - Gait disturbance [None]
  - Product substitution issue [None]
  - Speech disorder [None]
  - Confusional state [None]
  - Grip strength decreased [None]

NARRATIVE: CASE EVENT DATE: 20171017
